FAERS Safety Report 22321860 (Version 1)
Quarter: 2023Q2

REPORT INFORMATION
  Report Type: Report from Study
  Country: US (occurrence: US)
  Receive Date: 20230516
  Receipt Date: 20230516
  Transmission Date: 20230722
  Serious: Yes (Hospitalization)
  Sender: FDA-Public Use
  Company Number: US-JNJFOC-20230534388

PATIENT
  Age: 31 Year
  Sex: Female
  Weight: 45.5 kg

DRUGS (4)
  1. SELEXIPAG [Suspect]
     Active Substance: SELEXIPAG
     Indication: Pulmonary arterial hypertension
     Route: 048
  2. LETAIRIS [Concomitant]
     Active Substance: AMBRISENTAN
  3. FLOLAN [Concomitant]
     Active Substance: EPOPROSTENOL SODIUM
  4. TADALAFIL [Concomitant]
     Active Substance: TADALAFIL

REACTIONS (1)
  - Abdominal pain [Unknown]

NARRATIVE: CASE EVENT DATE: 20230507
